FAERS Safety Report 5094979-5 (Version None)
Quarter: 2006Q3

REPORT INFORMATION
  Report Type: 
  Country: None (occurrence: None)
  Receive Date: 20060728
  Receipt Date: 20060410
  Transmission Date: 20061208
  Serious: No
  Sender: FDA-Public Use
  Company Number: COT_0508_2006

PATIENT
  Sex: Male
  Weight: 73.4827 kg

DRUGS (5)
  1. VENTAVIS [Suspect]
     Indication: PULMONARY HYPERTENSION
     Dosage: 5 MCG 5XD IH
     Route: 055
     Dates: start: 20060218
  2. FUROSEMIDE [Concomitant]
  3. POTASSIUM CHLORIDE [Concomitant]
  4. DIGOXIN [Concomitant]
  5. TRACLEER [Concomitant]

REACTIONS (1)
  - SOMNOLENCE [None]
